FAERS Safety Report 6322002-0 (Version None)
Quarter: 2009Q3

REPORT INFORMATION
  Report Type: 
  Country: None (occurrence: None)
  Receive Date: 20090812
  Receipt Date: 20090421
  Transmission Date: 20100115
  Serious: No
  Sender: FDA-Public Use
  Company Number: WAES 0904USA03480

PATIENT
  Age: 44 Year
  Sex: Male

DRUGS (6)
  1. TAB ISENTRESSD [Suspect]
     Indication: HIV INFECTION
     Dosage: PO
     Route: 048
     Dates: start: 20081001
  2. PREZISTA [Suspect]
     Indication: HIV INFECTION
     Dosage: 600 MG/BID/PO
     Route: 048
     Dates: start: 20081001
  3. METHADONE HYDROCHLORIDE [Concomitant]
  4. TRUVADA [Suspect]
     Indication: HIV INFECTION
     Dates: start: 20081001
  5. NORVIR [Suspect]
     Indication: HIV INFECTION
     Dates: start: 20081001
  6. SELZENTRY [Suspect]
     Indication: HIV INFECTION
     Dates: start: 20081001

REACTIONS (3)
  - ABDOMINAL DISCOMFORT [None]
  - FATIGUE [None]
  - NAUSEA [None]
